FAERS Safety Report 9843064 (Version 1)
Quarter: 2013Q4

REPORT INFORMATION
  Report Type: Spontaneous
  Country: US (occurrence: None)
  Receive Date: 20131219
  Receipt Date: 20131219
  Transmission Date: 20140711
  Serious: Yes (Hospitalization)
  Sender: FDA-Public Use
  Company Number: 163-20785-13064489

PATIENT
  Age: 56 Year
  Sex: Male
  Weight: 83.92 kg

DRUGS (1)
  1. THALOMID (THALIDOMIDE) (50 MILLIGRAM, CAPSULES) [Suspect]
     Indication: PLASMA CELL MYELOMA
     Dosage: 50 MG, 1 IN 1 D, PO
     Route: 048
     Dates: start: 200909

REACTIONS (1)
  - Endocarditis [None]
